FAERS Safety Report 19951332 (Version 1)
Quarter: 2021Q4

REPORT INFORMATION
  Report Type: Spontaneous
  Country: CN (occurrence: CN)
  Receive Date: 20211013
  Receipt Date: 20211013
  Transmission Date: 20220303
  Serious: Yes (Other)
  Sender: FDA-Public Use
  Company Number: CN-PFIZER INC-202101302795

PATIENT
  Age: 31 Year
  Sex: Female
  Weight: 77 kg

DRUGS (1)
  1. HEMABATE [Suspect]
     Active Substance: CARBOPROST TROMETHAMINE
     Indication: Uterine atony
     Dosage: 250 UG, 1X/DAY
     Route: 019
     Dates: start: 20210928, end: 20210928

REACTIONS (4)
  - Dyspnoea [Recovered/Resolved]
  - Airway complication of anaesthesia [Recovered/Resolved]
  - Off label use [Unknown]
  - Product use issue [Unknown]

NARRATIVE: CASE EVENT DATE: 20210928
